FAERS Safety Report 24168930 (Version 1)
Quarter: 2024Q3

REPORT INFORMATION
  Report Type: Report from Study
  Country: US (occurrence: US)
  Receive Date: 20240802
  Receipt Date: 20240802
  Transmission Date: 20241017
  Serious: No
  Sender: ALEXION PHARMACEUTICALS
  Company Number: US-AstraZeneca-CH-00675064A

PATIENT
  Age: 30 Year
  Sex: Female

DRUGS (2)
  1. STRENSIQ [Suspect]
     Active Substance: ASFOTASE ALFA
     Indication: Hypophosphatasia
     Dosage: 80 MILLIGRAM, SIX TIMES/WEEK
     Route: 058
     Dates: start: 20240726
  2. STRENSIQ [Suspect]
     Active Substance: ASFOTASE ALFA
     Dosage: 24 MILLIGRAM, SIX TIMES/WEEK
     Route: 058
     Dates: start: 20240727

REACTIONS (3)
  - Injection site bruising [Unknown]
  - Injection site pain [Unknown]
  - Increased tendency to bruise [Unknown]

NARRATIVE: CASE EVENT DATE: 20240727
